FAERS Safety Report 13239561 (Version 4)
Quarter: 2017Q1

REPORT INFORMATION
  Report Type: Spontaneous
  Country: US (occurrence: US)
  Receive Date: 20170216
  Receipt Date: 20170303
  Transmission Date: 20170428
  Serious: Yes (Other)
  Sender: FDA-Public Use
  Company Number: US-JNJFOC-20170214324

PATIENT
  Age: 5 Decade
  Sex: Male

DRUGS (1)
  1. INVEGA TRINZA [Suspect]
     Active Substance: PALIPERIDONE PALMITATE
     Indication: SCHIZOAFFECTIVE DISORDER
     Route: 030

REACTIONS (5)
  - Somatic symptom disorder [Recovering/Resolving]
  - Off label use [Unknown]
  - Paranoia [Recovering/Resolving]
  - Product use issue [Unknown]
  - Agitation [Recovering/Resolving]
